FAERS Safety Report 5146866-1 (Version None)
Quarter: 2006Q4

REPORT INFORMATION
  Report Type: 
  Country: None (occurrence: None)
  Receive Date: 20061109
  Receipt Date: 20051118
  Transmission Date: 20070319
  Serious: Yes (Other)
  Sender: FDA-Public Use
  Company Number: GB-GLAXOSMITHKLINE-B0401085A

PATIENT
  Sex: Female

DRUGS (3)
  1. SEROXAT [Suspect]
     Indication: DEPRESSION
     Route: 065
     Dates: start: 20011027
  2. PAROXETINE HYDROCHLORIDE [Suspect]
     Dosage: 8MG PER DAY
     Route: 048
  3. MECLIZINE [Concomitant]
     Dosage: 12.5MG PER DAY
     Route: 048

REACTIONS (12)
  - AGGRESSION [None]
  - DEPRESSED MOOD [None]
  - DEPRESSIVE SYMPTOM [None]
  - DIARRHOEA [None]
  - DRUG WITHDRAWAL SYNDROME [None]
  - IMPULSIVE BEHAVIOUR [None]
  - INTENTIONAL SELF-INJURY [None]
  - LIBIDO DECREASED [None]
  - PARAESTHESIA [None]
  - SUICIDAL IDEATION [None]
  - TEARFULNESS [None]
  - TREMOR [None]
